FAERS Safety Report 9206141 (Version 1)
Quarter: 2013Q2

REPORT INFORMATION
  Report Type: Spontaneous
  Country: RO (occurrence: None)
  Receive Date: 20130401
  Receipt Date: 20130401
  Transmission Date: 20140414
  Serious: Yes (Hospitalization, Other)
  Sender: FDA-Public Use
  Company Number: 2013-05334

PATIENT
  Age: 45 Year
  Sex: Male

DRUGS (2)
  1. ALPRAZOLAM [Suspect]
     Indication: DEPRESSION
     Dosage: 75 MG/ 3 DAYS - PROGRESSIVE INCREASED DOSES, UNKNOWN
     Dates: start: 1997
  2. ALPRAZOLAM [Suspect]
     Indication: ANXIETY
     Dosage: 75 MG/ 3 DAYS - PROGRESSIVE INCREASED DOSES, UNKNOWN
     Dates: start: 1997

REACTIONS (5)
  - Drug dependence [None]
  - Intentional drug misuse [None]
  - Anxiety [None]
  - Insomnia [None]
  - Social problem [None]
